FAERS Safety Report 8158006-5 (Version None)
Quarter: 2012Q1

REPORT INFORMATION
  Report Type: 
  Country: None (occurrence: None)
  Receive Date: 20120222
  Receipt Date: 20120215
  Transmission Date: 20120608
  Serious: Yes (Hospitalization, Other)
  Sender: FDA-Public Use
  Company Number: PHEH2011US009931

PATIENT
  Sex: Male
  Weight: 81.633 kg

DRUGS (10)
  1. VALIUM [Concomitant]
     Indication: ANXIETY
     Dosage: 10 MG, PRN
     Route: 048
  2. ASCORBIC ACID [Concomitant]
  3. GILENYA [Suspect]
     Indication: MULTIPLE SCLEROSIS
     Dosage: 0.5 MG, QD
     Route: 048
     Dates: start: 20110913
  4. VITAMIN B-12 [Concomitant]
  5. VITAMIN D [Concomitant]
  6. NORCO [Concomitant]
     Indication: ANALGESIC THERAPY
     Dosage: 325/5 MG, PRN
     Route: 048
  7. BACLOFEN [Concomitant]
     Dosage: 10 MG, TID
     Route: 048
  8. VITAMIN B6 [Concomitant]
  9. NEXIUM [Concomitant]
     Indication: GASTROOESOPHAGEAL REFLUX DISEASE
     Dosage: UNK UKN, UNK
     Route: 048
  10. ALLEGRA-D 12 HOUR [Concomitant]
     Indication: HYPERSENSITIVITY
     Dosage: 240 MG, PRN
     Route: 048

REACTIONS (6)
  - CONFUSIONAL STATE [None]
  - LOSS OF CONSCIOUSNESS [None]
  - SOMNOLENCE [None]
  - AMNESIA [None]
  - MUSCLE RIGIDITY [None]
  - GRAND MAL CONVULSION [None]
